FAERS Safety Report 12804424 (Version 2)
Quarter: 2016Q4

REPORT INFORMATION
  Report Type: Spontaneous
  Country: CA (occurrence: CA)
  Receive Date: 20161003
  Receipt Date: 20161214
  Transmission Date: 20170207
  Serious: Yes (Other)
  Sender: FDA-Public Use
  Company Number: CA-JNJFOC-20160930790

PATIENT
  Sex: Male

DRUGS (2)
  1. MICRONOR [Suspect]
     Active Substance: NORETHINDRONE
     Indication: CONTRACEPTION
     Route: 063
     Dates: end: 201610
  2. MICRONOR [Suspect]
     Active Substance: NORETHINDRONE
     Indication: CONTRACEPTION
     Dosage: MOTHER^S DOSING
     Route: 063
     Dates: start: 201606

REACTIONS (2)
  - Exposure during breast feeding [Unknown]
  - Haemorrhage [Recovered/Resolved]
